FAERS Safety Report 9011662 (Version 3)
Quarter: 2013Q1

REPORT INFORMATION
  Report Type: Report from Study
  Country: BR (occurrence: BR)
  Receive Date: 20130108
  Receipt Date: 20130306
  Transmission Date: 20140127
  Serious: Yes (Death)
  Sender: FDA-Public Use
  Company Number: BR-ROCHE-1176569

PATIENT
  Age: 58 Year
  Sex: Male
  Weight: 55.4 kg

DRUGS (6)
  1. PEG-INTERFERON ALFA 2A [Suspect]
     Indication: CHRONIC HEPATITIS C
     Route: 058
  2. RIBAVIRIN [Suspect]
     Indication: CHRONIC HEPATITIS C
     Route: 065
  3. TELAPREVIR [Suspect]
     Indication: CHRONIC HEPATITIS C
     Dosage: 2 TABLETS
     Route: 048
     Dates: start: 20121009, end: 20121230
  4. BLINDED TMC435 [Suspect]
     Indication: CHRONIC HEPATITIS C
     Route: 048
     Dates: start: 20121009
  5. DIAMICRON [Concomitant]
     Route: 048
  6. LINAGLIPTIN [Concomitant]
     Route: 048

REACTIONS (1)
  - Septic shock [Fatal]
